FAERS Safety Report 5335500-3 (Version None)
Quarter: 2007Q2

REPORT INFORMATION
  Report Type: 
  Country: None (occurrence: None)
  Receive Date: 20070525
  Receipt Date: 20070516
  Transmission Date: 20071010
  Serious: Yes (Hospitalization)
  Sender: FDA-Public Use
  Company Number: IT-PFIZER INC-2007040569

PATIENT
  Sex: Female

DRUGS (8)
  1. TROZOCINA [Suspect]
     Indication: PYODERMA
     Route: 048
     Dates: start: 20070427, end: 20070429
  2. TETANUS VACCINE [Suspect]
     Indication: PROPHYLAXIS
     Route: 030
     Dates: start: 20070426, end: 20070426
  3. AUGMENTIN '125' [Suspect]
     Indication: PYODERMA
     Route: 048
     Dates: start: 20070423, end: 20070426
  4. ALPRAZOLAM [Concomitant]
  5. CYTOTEC [Concomitant]
  6. PLAQUENIL [Concomitant]
  7. DELTACORTENE [Concomitant]
  8. ASPIRIN [Concomitant]

REACTIONS (3)
  - FACE OEDEMA [None]
  - OEDEMA PERIPHERAL [None]
  - RASH [None]
